FAERS Safety Report 8578790-6 (Version None)
Quarter: 2012Q3

REPORT INFORMATION
  Report Type: 
  Country: None (occurrence: None)
  Receive Date: 20120808
  Receipt Date: 20120803
  Transmission Date: 20120928
  Serious: Yes (Hospitalization)
  Sender: FDA-Public Use
  Company Number: FR-BAYER-2012-079626

PATIENT
  Age: 70 Year
  Sex: Male

DRUGS (5)
  1. FUNGIZONE [Concomitant]
     Indication: CANDIDIASIS
     Dosage: UNK
     Route: 048
     Dates: start: 20120618
  2. CIPROFLOXACIN [Suspect]
     Indication: SEPTIC SHOCK
     Dosage: 1 DF, QD
     Route: 042
     Dates: start: 20120617, end: 20120619
  3. TAZOBACTAM [Concomitant]
     Indication: SEPTIC SHOCK
     Dosage: 1 DF, QD
     Route: 042
     Dates: start: 20120617
  4. VANCOMYCIN [Suspect]
     Dosage: 750 MG, QD
     Route: 042
     Dates: start: 20120617, end: 20120617
  5. RANITIDINE [Concomitant]
     Dosage: 150 MG, QD
     Route: 042
     Dates: start: 20120617

REACTIONS (3)
  - CONFUSIONAL STATE [None]
  - DISORIENTATION [None]
  - AGGRESSION [None]
